FAERS Safety Report 8135027-X (Version None)
Quarter: 2012Q1

REPORT INFORMATION
  Report Type: 
  Country: None (occurrence: None)
  Receive Date: 20120214
  Receipt Date: 20120130
  Transmission Date: 20120608
  Serious: No
  Sender: FDA-Public Use
  Company Number: DE-JNJFOC-20120110269

PATIENT
  Sex: Female
  Weight: 108 kg

DRUGS (4)
  1. TAPENTADOL HYDROCHLORIDE [Suspect]
     Indication: PAIN
     Route: 065
     Dates: start: 20110205
  2. MELOXICAM [Concomitant]
     Route: 065
     Dates: start: 20060301
  3. OMEPRAZOLE [Concomitant]
     Route: 065
     Dates: start: 20111101
  4. SYNTESTAN [Concomitant]
     Indication: PRODUCT USED FOR UNKNOWN INDICATION
     Dates: start: 20040401

REACTIONS (1)
  - ALOPECIA [None]
